FAERS Safety Report 7885352-2 (Version None)
Quarter: 2011Q4

REPORT INFORMATION
  Report Type: 
  Country: None (occurrence: None)
  Receive Date: 20111102
  Receipt Date: 20111026
  Transmission Date: 20120403
  Serious: Yes (Hospitalization)
  Sender: FDA-Public Use
  Company Number: CA-AMGEN-CANSP2011055737

PATIENT
  Age: 62 Year
  Sex: Male
  Weight: 99 kg

DRUGS (2)
  1. ENBREL [Suspect]
     Indication: PRODUCT USED FOR UNKNOWN INDICATION
     Dosage: 50 MG, QWK
     Route: 058
  2. STELARA [Suspect]
     Route: 058

REACTIONS (2)
  - ANAEMIA [None]
  - OESOPHAGEAL VARICES HAEMORRHAGE [None]
